FAERS Safety Report 9290232 (Version 1)
Quarter: 2013Q2

REPORT INFORMATION
  Report Type: Spontaneous
  Country: IT (occurrence: IT)
  Receive Date: 20130515
  Receipt Date: 20130515
  Transmission Date: 20140414
  Serious: Yes (Other)
  Sender: FDA-Public Use
  Company Number: IT-JNJFOC-20130504748

PATIENT
  Sex: 0

DRUGS (6)
  1. INFLIXIMAB, RECOMBINANT [Suspect]
     Indication: COLITIS ULCERATIVE
     Route: 042
  2. AZATHIOPRINE [Suspect]
     Indication: PRODUCT USED FOR UNKNOWN INDICATION
     Route: 065
  3. THIOPURINE [Concomitant]
     Dosage: 2 TO 2.5 MG/KG/D
     Route: 065
  4. CORTICOSTEROID [Concomitant]
     Route: 065
  5. MESALAMINE [Concomitant]
     Route: 048
  6. MESALAMINE [Concomitant]
     Route: 061

REACTIONS (3)
  - Herpes zoster [Unknown]
  - Psoriasis [Unknown]
  - Drug ineffective [Unknown]
